FAERS Safety Report 7513462-8 (Version None)
Quarter: 2011Q2

REPORT INFORMATION
  Report Type: 
  Country: None (occurrence: None)
  Receive Date: 20110531
  Receipt Date: 20110517
  Transmission Date: 20111010
  Serious: Yes (Other)
  Sender: FDA-Public Use
  Company Number: DE-UCBSA-033673

PATIENT
  Sex: Female

DRUGS (2)
  1. VIMPAT [Suspect]
     Dates: start: 20110101
  2. CARBAMAEZPIN [Concomitant]

REACTIONS (3)
  - NAUSEA [None]
  - DYSPNOEA [None]
  - CARDIOVASCULAR DISORDER [None]
